FAERS Safety Report 23064022 (Version 1)
Quarter: 2023Q4

REPORT INFORMATION
  Report Type: Spontaneous
  Country: US (occurrence: US)
  Receive Date: 20231013
  Receipt Date: 20231013
  Transmission Date: 20240110
  Serious: Yes (Hospitalization)
  Sender: FDA-Public Use
  Company Number: US-AMGEN-USASP2023179986

PATIENT
  Age: 54 Year
  Sex: Male

DRUGS (6)
  1. RITUXIMAB [Suspect]
     Active Substance: RITUXIMAB
     Indication: Granulomatosis with polyangiitis
     Dosage: UNK
     Route: 065
  2. AVACOPAN [Suspect]
     Active Substance: AVACOPAN
     Indication: Granulomatosis with polyangiitis
     Dosage: UNK
     Route: 065
  3. COCAINE [Suspect]
     Active Substance: COCAINE
     Indication: Product used for unknown indication
     Route: 065
  4. PREDNISONE [Concomitant]
     Active Substance: PREDNISONE
     Indication: Granulomatosis with polyangiitis
  5. OXYGEN [Concomitant]
     Active Substance: OXYGEN
     Indication: Chronic respiratory failure
     Dosage: 3 LITER
  6. OXYGEN [Concomitant]
     Active Substance: OXYGEN
     Dosage: 6 LITER

REACTIONS (1)
  - Pulmonary alveolar haemorrhage [Unknown]
